FAERS Safety Report 10480281 (Version 3)
Quarter: 2014Q4

REPORT INFORMATION
  Report Type: Spontaneous
  Country: IT (occurrence: IT)
  Receive Date: 20140929
  Receipt Date: 20141222
  Transmission Date: 20150528
  Serious: Yes (Other)
  Sender: FDA-Public Use
  Company Number: IT-009507513-1409ITA011781

PATIENT
  Age: 59 Year
  Sex: Male
  Weight: 83 kg

DRUGS (4)
  1. COPEGUS [Suspect]
     Active Substance: RIBAVIRIN
     Dosage: TOTAL DAILY DOSE: 800MG
     Route: 048
     Dates: start: 20131123, end: 20140429
  2. VICTRELIS [Suspect]
     Active Substance: BOCEPREVIR
     Indication: CHRONIC HEPATITIS C
     Dosage: TOTAL DAILY DOSE: 2400MG
     Route: 048
     Dates: start: 20131019, end: 20140307
  3. COPEGUS [Suspect]
     Active Substance: RIBAVIRIN
     Indication: CHRONIC HEPATITIS C
     Dosage: TOTAL DAILY DOSE: 1000MG
     Route: 048
     Dates: start: 20130917, end: 20131122
  4. PEGASYS [Suspect]
     Active Substance: PEGINTERFERON ALFA-2A
     Indication: CHRONIC HEPATITIS C
     Dosage: 180 MICROGRAM, QW
     Route: 058
     Dates: start: 20130917, end: 20140429

REACTIONS (4)
  - Pruritus [Recovering/Resolving]
  - Anaemia [Recovering/Resolving]
  - Colitis ulcerative [Recovering/Resolving]
  - Colitis ulcerative [Recovering/Resolving]

NARRATIVE: CASE EVENT DATE: 201310
